FAERS Safety Report 15290316 (Version 1)
Quarter: 2018Q3

REPORT INFORMATION
  Report Type: Spontaneous
  Country: HU (occurrence: HU)
  Receive Date: 20180817
  Receipt Date: 20180817
  Transmission Date: 20181010
  Serious: Yes (Life-Threatening, Hospitalization, Other)
  Sender: FDA-Public Use
  Company Number: HU-ASTRAZENECA-2018SF02196

PATIENT
  Age: 33 Year
  Sex: Female

DRUGS (4)
  1. KETILEPT [Concomitant]
  2. RIVOTRIL [Concomitant]
     Active Substance: CLONAZEPAM
  3. XIGDUO XR [Suspect]
     Active Substance: DAPAGLIFLOZIN PROPANEDIOL\METFORMIN HYDROCHLORIDE
     Indication: DIABETES MELLITUS
     Dosage: 1.0DF UNKNOWN
     Route: 048
     Dates: end: 201807
  4. FLUANXOL [Concomitant]
     Active Substance: FLUPENTIXOL
     Route: 030

REACTIONS (5)
  - Blood creatine phosphokinase increased [Recovered/Resolved]
  - Altered state of consciousness [Recovered/Resolved]
  - Agitation [Recovered/Resolved]
  - Polyuria [Recovered/Resolved]
  - Euglycaemic diabetic ketoacidosis [Recovered/Resolved]

NARRATIVE: CASE EVENT DATE: 201807
